FAERS Safety Report 4353300-8 (Version None)
Quarter: 2004Q2

REPORT INFORMATION
  Report Type: 
  Country: None (occurrence: None)
  Receive Date: 20040429
  Receipt Date: 20040416
  Transmission Date: 20050107
  Serious: Yes (Hospitalization)
  Sender: FDA-Public Use
  Company Number: 2004026127

PATIENT
  Age: 71 Year
  Sex: Male

DRUGS (7)
  1. LIPITOR [Suspect]
     Indication: ATHEROSCLEROSIS
     Dates: start: 20031201, end: 20040201
  2. LIPITOR [Suspect]
     Indication: CAROTID ARTERY STENOSIS
     Dates: start: 20031201, end: 20040201
  3. LIPITOR [Suspect]
     Indication: HYPERCHOLESTEROLAEMIA
     Dates: start: 20031201, end: 20040201
  4. ACETYLSALICYLIC ACID SRT [Concomitant]
  5. CALCIUM (CALCIUM) [Concomitant]
  6. ACETAMINOPHEN [Concomitant]
  7. MULTIVITAMINS (ASCORBIC ACID, ERGOCALCIFEROL, FOLIC ACID, NICOTINAMIDE [Concomitant]

REACTIONS (6)
  - COAGULOPATHY [None]
  - CRYPTOGENIC CIRRHOSIS [None]
  - ENCEPHALOPATHY [None]
  - HEPATITIS ACUTE [None]
  - HEPATOTOXICITY [None]
  - PORTAL HYPERTENSION [None]
